FAERS Safety Report 9456582 (Version 1)
Quarter: 2013Q3

REPORT INFORMATION
  Report Type: Spontaneous
  Country: CH (occurrence: CH)
  Receive Date: 20130813
  Receipt Date: 20130813
  Transmission Date: 20140515
  Serious: Yes (Other)
  Sender: FDA-Public Use
  Company Number: CH-PFIZER INC-2013199860

PATIENT
  Age: 46 Year
  Sex: Female
  Weight: 50 kg

DRUGS (1)
  1. ZOLOFT [Suspect]
     Indication: OBSESSIVE-COMPULSIVE DISORDER
     Dosage: 50 MG, 1X/DAY
     Route: 048
     Dates: start: 20090327

REACTIONS (7)
  - Abscess [Unknown]
  - Infection [Unknown]
  - Resorption bone increased [Unknown]
  - Tooth loss [Unknown]
  - Bone density decreased [Unknown]
  - Periodontitis [Unknown]
  - Tooth disorder [Unknown]
